FAERS Safety Report 17557678 (Version 2)
Quarter: 2020Q2

REPORT INFORMATION
  Report Type: Report from Study
  Country: None (occurrence: CO)
  Receive Date: 20200318
  Receipt Date: 20200414
  Transmission Date: 20200713
  Serious: Yes (Other)
  Sender: FDA-Public Use
  Company Number: CO-ABBVIE-20K-036-3325153-00

PATIENT
  Age: 61 Year
  Sex: Female
  Weight: 54 kg

DRUGS (4)
  1. HUMIRA [Suspect]
     Active Substance: ADALIMUMAB
     Indication: RHEUMATOID ARTHRITIS
     Route: 058
     Dates: start: 20091021
  2. AMOXICILLIN. [Suspect]
     Active Substance: AMOXICILLIN
     Indication: ORAL INFECTION
     Route: 048
     Dates: start: 20200204
  3. CLINDAMICINA [Suspect]
     Active Substance: CLINDAMYCIN HYDROCHLORIDE
     Indication: ORAL INFECTION
     Route: 048
     Dates: start: 20200204, end: 202002
  4. HUMIRA [Suspect]
     Active Substance: ADALIMUMAB
     Indication: RHEUMATOID ARTHRITIS
     Route: 058
     Dates: end: 20200204

REACTIONS (9)
  - Inflammation [Recovering/Resolving]
  - Loose tooth [Unknown]
  - Breast pain [Recovering/Resolving]
  - Stomatitis [Recovering/Resolving]
  - Diarrhoea [Recovering/Resolving]
  - Dental care [Recovering/Resolving]
  - Gingivitis [Recovering/Resolving]
  - Hypersensitivity [Recovering/Resolving]
  - Oral pain [Recovering/Resolving]

NARRATIVE: CASE EVENT DATE: 20200130
